FAERS Safety Report 9103103 (Version 2)
Quarter: 2013Q1

REPORT INFORMATION
  Report Type: Spontaneous
  Country: ES (occurrence: ES)
  Receive Date: 20130219
  Receipt Date: 20130308
  Transmission Date: 20140127
  Serious: Yes (Death)
  Sender: FDA-Public Use
  Company Number: ES-OTSUKA-EU-2013-10038

PATIENT
  Age: 70 Year
  Sex: Male

DRUGS (1)
  1. SAMSCA [Suspect]
     Indication: INAPPROPRIATE ANTIDIURETIC HORMONE SECRETION
     Dosage: 15 MG MILLIGRAM(S), QOD
     Route: 065
     Dates: start: 201212, end: 201301

REACTIONS (1)
  - Incorrect drug administration rate [Unknown]
